FAERS Safety Report 7584026-5 (Version None)
Quarter: 2011Q2

REPORT INFORMATION
  Report Type: 
  Country: None (occurrence: None)
  Receive Date: 20110623
  Receipt Date: 20110610
  Transmission Date: 20111010
  Serious: Yes (Other)
  Sender: FDA-Public Use
  Company Number: 2011AP001211

PATIENT
  Age: 61 Year
  Sex: Female

DRUGS (4)
  1. DOXYCYCLINE [Concomitant]
  2. LOSARTAN POTASSIUM [Suspect]
     Indication: HYPERTENSION
     Dosage: 1 TAB;QD;PO
     Route: 048
     Dates: start: 20110516, end: 20110529
  3. AMLODIPINE [Concomitant]
  4. LOSARTAN POTASSIUM [Concomitant]

REACTIONS (4)
  - PRURITUS [None]
  - SWOLLEN TONGUE [None]
  - LIP SWELLING [None]
  - LIP PRURITUS [None]
